FAERS Safety Report 9969990 (Version 1)
Quarter: 2014Q1

REPORT INFORMATION
  Report Type: Spontaneous
  Country: US (occurrence: US)
  Receive Date: 20140306
  Receipt Date: 20140306
  Transmission Date: 20141002
  Serious: Yes (Death, Other)
  Sender: FDA-Public Use
  Company Number: US-AMGEN-USASP2014014650

PATIENT
  Age: 82 Year
  Sex: Female

DRUGS (20)
  1. PROLIA [Suspect]
     Indication: OSTEOPOROSIS POSTMENOPAUSAL
     Dosage: UNK
     Route: 065
  2. LOPERAMIDE [Concomitant]
  3. ACETAMINOPHEN [Concomitant]
  4. AMLODIPINE [Concomitant]
  5. ASACOL [Concomitant]
  6. ASPIRIN [Concomitant]
     Dosage: 81 MG, UNK
  7. CALCITRIOL [Concomitant]
  8. DOXYCYCLINE [Concomitant]
  9. TRIAMCINOLONE [Concomitant]
  10. FUROSEMIDE [Concomitant]
  11. IRON SULFATE [Concomitant]
  12. ISOSORBIDE [Concomitant]
  13. LEVOTHYROXINE [Concomitant]
  14. METOPROLOL [Concomitant]
  15. PREDNISONE [Concomitant]
     Dosage: 05 MG, QD
  16. ULORIC [Concomitant]
  17. VITAMIN B12                        /00056201/ [Concomitant]
  18. CETIRIZINE [Concomitant]
  19. CALCIUM [Concomitant]
  20. VITAMIN D                          /00107901/ [Concomitant]

REACTIONS (3)
  - Cardiac failure [Fatal]
  - General physical health deterioration [Unknown]
  - Blood creatinine abnormal [Unknown]
